FAERS Safety Report 9232931 (Version 1)
Quarter: 2013Q2

REPORT INFORMATION
  Report Type: Spontaneous
  Country: US (occurrence: None)
  Receive Date: 20130415
  Receipt Date: 20130415
  Transmission Date: 20140414
  Serious: Yes (Other)
  Sender: FDA-Public Use
  Company Number: None

PATIENT
  Age: 55 Year
  Sex: Female
  Weight: 77.11 kg

DRUGS (1)
  1. LEVOFLOXACIN [Suspect]
     Indication: DIVERTICULITIS
     Dosage: 1 TABLET DAILLY PO
     Route: 048
     Dates: start: 20120727, end: 20120728

REACTIONS (6)
  - Pruritus [None]
  - Insomnia [None]
  - Hallucination [None]
  - Psychomotor hyperactivity [None]
  - Anxiety [None]
  - Scratch [None]
